FAERS Safety Report 18146651 (Version 1)
Quarter: 2020Q3

REPORT INFORMATION
  Report Type: Spontaneous
  Country: FR (occurrence: FR)
  Receive Date: 20200813
  Receipt Date: 20200813
  Transmission Date: 20201103
  Serious: Yes (Life-Threatening, Hospitalization, Other)
  Sender: FDA-Public Use
  Company Number: FR-TRIS PHARMA, INC.-20FR009033

PATIENT

DRUGS (5)
  1. MORPHINE SULFATE. [Suspect]
     Active Substance: MORPHINE SULFATE
     Indication: PRODUCT USED FOR UNKNOWN INDICATION
     Dosage: UNK
     Route: 064
  2. OXYCODONE [Suspect]
     Active Substance: OXYCODONE
     Indication: PRODUCT USED FOR UNKNOWN INDICATION
     Dosage: 5 MILLIGRAM, QID
     Route: 064
  3. NEFOPAM [Suspect]
     Active Substance: NEFOPAM
     Indication: PRODUCT USED FOR UNKNOWN INDICATION
     Dosage: 120 MILLIGRAM, QD
     Route: 064
  4. MORPHINE [Suspect]
     Active Substance: MORPHINE
     Indication: PRODUCT USED FOR UNKNOWN INDICATION
     Route: 064
  5. CORTICOSTEROID NOS [Concomitant]
     Active Substance: CORTICOSTEROID NOS
     Indication: PRODUCT USED FOR UNKNOWN INDICATION
     Route: 064

REACTIONS (15)
  - Amniotic fluid index increased [Recovered/Resolved]
  - Neonatal anoxia [Unknown]
  - Intraventricular haemorrhage neonatal [Unknown]
  - Urinary bladder rupture [Recovered/Resolved]
  - Peritonitis [Unknown]
  - Blood creatinine increased [Recovered/Resolved]
  - Pyelocaliectasis [Unknown]
  - Respiratory disorder neonatal [Recovering/Resolving]
  - Escherichia infection [Unknown]
  - Foetal heart rate abnormal [Unknown]
  - Premature baby [Unknown]
  - Foetal megacystis [Unknown]
  - Urinary ascites [Recovered/Resolved]
  - Apgar score low [Unknown]
  - Foetal exposure during pregnancy [Unknown]
